FAERS Safety Report 19075654 (Version 12)
Quarter: 2022Q2

REPORT INFORMATION
  Report Type: Spontaneous
  Country: GB (occurrence: GB)
  Receive Date: 20210331
  Receipt Date: 20220414
  Transmission Date: 20220720
  Serious: Yes (Death, Life-Threatening, Hospitalization, Disabling, Other)
  Sender: FDA-Public Use
  Company Number: GB-KYOWAKIRIN-2020BKK015405AA

PATIENT
  Age: 5 Year
  Sex: Male
  Weight: 9.7 kg

DRUGS (42)
  1. CIPROFLOXACIN [Suspect]
     Active Substance: CIPROFLOXACIN
     Indication: Product used for unknown indication
     Route: 065
  2. PENICILLIN G [Suspect]
     Active Substance: PENICILLIN G
     Indication: Product used for unknown indication
     Route: 065
  3. CEFUROXIME [Suspect]
     Active Substance: CEFUROXIME
     Indication: Antibiotic therapy
     Route: 042
  4. CEFUROXIME [Suspect]
     Active Substance: CEFUROXIME
     Indication: Antibiotic therapy
  5. AMOXICILLIN\CLAVULANATE POTASSIUM [Suspect]
     Active Substance: AMOXICILLIN\CLAVULANATE POTASSIUM
     Indication: Pneumonia
     Route: 065
     Dates: start: 20160714, end: 20160720
  6. AMOXICILLIN\CLAVULANATE POTASSIUM [Suspect]
     Active Substance: AMOXICILLIN\CLAVULANATE POTASSIUM
     Route: 065
     Dates: start: 20150611
  7. FENTANYL [Suspect]
     Active Substance: FENTANYL
     Indication: Pneumococcal infection
     Route: 065
  8. GENTAMICIN [Suspect]
     Active Substance: GENTAMICIN
     Indication: Antibiotic therapy
     Route: 042
  9. GENTAMICIN [Suspect]
     Active Substance: GENTAMICIN
     Indication: Pneumococcal sepsis
     Route: 042
  10. GENTAMICIN [Suspect]
     Active Substance: GENTAMICIN
     Indication: Rubella immunisation
  11. GENTAMICIN [Suspect]
     Active Substance: GENTAMICIN
     Indication: Antibiotic therapy
  12. GENTAMICIN [Suspect]
     Active Substance: GENTAMICIN
     Indication: Mumps immunisation
  13. GENTAMICIN [Suspect]
     Active Substance: GENTAMICIN
     Indication: Measles immunisation
  14. DEXTROSE [Suspect]
     Active Substance: DEXTROSE
     Indication: Pneumonia
     Route: 065
  15. M-M-RVAXPRO [Suspect]
     Active Substance: MEASLES VIRUS STRAIN ENDERS^ ATTENUATED EDMONSTON LIVE ANTIGEN\MUMPS VIRUS STRAIN B LEVEL JERYL LYNN
     Indication: Pneumococcal sepsis
     Route: 065
  16. M-M-RVAXPRO [Suspect]
     Active Substance: MEASLES VIRUS STRAIN ENDERS^ ATTENUATED EDMONSTON LIVE ANTIGEN\MUMPS VIRUS STRAIN B LEVEL JERYL LYNN
     Indication: Pneumococcal sepsis
  17. M-M-RVAXPRO [Suspect]
     Active Substance: MEASLES VIRUS STRAIN ENDERS^ ATTENUATED EDMONSTON LIVE ANTIGEN\MUMPS VIRUS STRAIN B LEVEL JERYL LYNN
     Indication: Antibiotic therapy
  18. MEROPENEM [Suspect]
     Active Substance: MEROPENEM
     Indication: Antibiotic therapy
     Route: 065
  19. MEROPENEM [Suspect]
     Active Substance: MEROPENEM
     Indication: Antibiotic therapy
  20. MUMPS VIRUS VACCINE LIVE [Suspect]
     Active Substance: MUMPS VIRUS STRAIN B LEVEL JERYL LYNN LIVE ANTIGEN
     Indication: Pneumococcal sepsis
     Route: 065
  21. PENICILLIN V [Suspect]
     Active Substance: PENICILLIN V
     Indication: Antibiotic therapy
     Route: 065
  22. PENICILLIN V [Suspect]
     Active Substance: PENICILLIN V
     Indication: Antibiotic therapy
  23. PIPERACILLIN AND TAZOBACTAM [Suspect]
     Active Substance: PIPERACILLIN SODIUM\TAZOBACTAM SODIUM
     Indication: Respiratory arrest
     Route: 065
  24. PIPERACILLIN AND TAZOBACTAM [Suspect]
     Active Substance: PIPERACILLIN SODIUM\TAZOBACTAM SODIUM
     Indication: Vomiting
  25. POTASSIUM CHLORIDE [Suspect]
     Active Substance: POTASSIUM CHLORIDE
     Indication: Pneumonia
     Route: 065
  26. POTASSIUM CHLORIDE [Suspect]
     Active Substance: POTASSIUM CHLORIDE
     Route: 065
  27. PROPOFOL [Suspect]
     Active Substance: PROPOFOL
     Indication: Product used for unknown indication
     Route: 065
  28. PULMOZYME [Suspect]
     Active Substance: DORNASE ALFA
     Indication: Interstitial lung disease
     Route: 065
  29. PULMOZYME [Suspect]
     Active Substance: DORNASE ALFA
  30. RUBELLA VIRUS VACCINE, LIVE [Suspect]
     Active Substance: RUBELLA VIRUS STRAIN WISTAR RA 27/3 LIVE ANTIGEN
     Indication: Pneumococcal sepsis
     Route: 065
  31. RUBELLA VIRUS VACCINE, LIVE [Suspect]
     Active Substance: RUBELLA VIRUS STRAIN WISTAR RA 27/3 LIVE ANTIGEN
     Route: 065
  32. SODIUM CHLORIDE [Suspect]
     Active Substance: SODIUM CHLORIDE
     Indication: Pneumonia
     Route: 065
  33. SODIUM CHLORIDE [Suspect]
     Active Substance: SODIUM CHLORIDE
     Route: 065
  34. TRISODIUM CITRATE DIHYDRATE [Suspect]
     Active Substance: TRISODIUM CITRATE DIHYDRATE
     Indication: Pneumonia
     Route: 065
  35. TRISODIUM CITRATE DIHYDRATE [Suspect]
     Active Substance: TRISODIUM CITRATE DIHYDRATE
     Dosage: UNK
     Route: 065
  36. VENTOLIN [Suspect]
     Active Substance: ALBUTEROL SULFATE
     Indication: Product used for unknown indication
     Route: 065
  37. AMOXICILLIN TRIHYDRATE [Suspect]
     Active Substance: AMOXICILLIN
     Indication: Product used for unknown indication
  38. CLAVULANATE POTASSIUM [Suspect]
     Active Substance: CLAVULANATE POTASSIUM
     Indication: Product used for unknown indication
  39. AMOXICILLIN\CLAVULANIC ACID [Suspect]
     Active Substance: AMOXICILLIN\CLAVULANIC ACID
     Indication: Pneumonia
     Dosage: UNK
     Route: 065
     Dates: start: 20150611
  40. AMOXICILLIN\CLAVULANIC ACID [Suspect]
     Active Substance: AMOXICILLIN\CLAVULANIC ACID
     Dates: start: 20160714, end: 20160720
  41. ALBUTEROL [Suspect]
     Active Substance: ALBUTEROL
     Indication: Product used for unknown indication
  42. DURAGESIC [Suspect]
     Active Substance: FENTANYL
     Indication: Product used for unknown indication

REACTIONS (52)
  - Circulatory collapse [Fatal]
  - Brain injury [Fatal]
  - Intestinal ischaemia [Fatal]
  - Cerebral ischaemia [Fatal]
  - Respiratory arrest [Fatal]
  - Respiratory tract infection bacterial [Fatal]
  - Malaise [Fatal]
  - Spinal muscular atrophy [Fatal]
  - Resuscitation [Fatal]
  - Condition aggravated [Fatal]
  - Lung consolidation [Fatal]
  - Interstitial lung disease [Fatal]
  - Metabolic disorder [Fatal]
  - Tachypnoea [Fatal]
  - Inflammation [Fatal]
  - Atelectasis [Fatal]
  - Sputum increased [Fatal]
  - Increased bronchial secretion [Fatal]
  - Dysphagia [Fatal]
  - Pneumonia [Fatal]
  - Pneumonia aspiration [Fatal]
  - Lower respiratory tract infection bacterial [Fatal]
  - Motor dysfunction [Fatal]
  - Dehydration [Fatal]
  - Chest X-ray abnormal [Fatal]
  - Secretion discharge [Fatal]
  - Injury [Fatal]
  - Disease complication [Fatal]
  - Endotracheal intubation [Fatal]
  - Mechanical ventilation [Fatal]
  - Ischaemic cerebral infarction [Fatal]
  - Positive airway pressure therapy [Fatal]
  - Scoliosis [Fatal]
  - Ascites [Fatal]
  - Stoma closure [Fatal]
  - Demyelination [Fatal]
  - Motor neurone disease [Fatal]
  - Muscle atrophy [Fatal]
  - Bronchial disorder [Fatal]
  - Brain injury [Fatal]
  - Lung infiltration [Fatal]
  - Lymphadenectomy [Fatal]
  - Vomiting [Fatal]
  - Muscular weakness [Fatal]
  - Dysphagia [Fatal]
  - Dyspnoea [Fatal]
  - Diarrhoea [Fatal]
  - Pyrexia [Fatal]
  - Dyspnoea [Fatal]
  - Vomiting [Unknown]
  - Pneumococcal sepsis [Recovered/Resolved]
  - Intestinal ischaemia [Fatal]

NARRATIVE: CASE EVENT DATE: 20160620
